FAERS Safety Report 6072505-1 (Version None)
Quarter: 2009Q1

REPORT INFORMATION
  Report Type: 
  Country: None (occurrence: None)
  Receive Date: 20090210
  Receipt Date: 20090129
  Transmission Date: 20090719
  Serious: Yes (Death, Hospitalization)
  Sender: FDA-Public Use
  Company Number: JP-PFIZER INC-2007071746

PATIENT

DRUGS (8)
  1. HYSRON [Suspect]
     Indication: BREAST CANCER RECURRENT
     Dosage: 800 MG, 1X/DAY
     Route: 048
     Dates: start: 20041203, end: 20070807
  2. DOXORUBICIN HCL [Suspect]
     Indication: BREAST CANCER RECURRENT
     Dosage: UNK
     Route: 042
     Dates: start: 20020426, end: 20020705
  3. VINORELBINE [Suspect]
     Indication: BREAST CANCER RECURRENT
     Dosage: 25 MG/M2, UNK
     Route: 042
     Dates: start: 20070821, end: 20070821
  4. LOXONIN [Suspect]
     Dosage: 30 MG, UNK
     Route: 048
  5. LOXONIN [Suspect]
     Dosage: 180 MG, UNK
     Route: 048
  6. OXYCONTIN [Suspect]
     Dosage: 10 MG, 2X/DAY
     Route: 048
  7. OXYCONTIN [Suspect]
     Dosage: 80 MG, UNK
  8. TAXOL [Concomitant]
     Dosage: 130 MG/M2, UNK
     Route: 042
     Dates: start: 20041203, end: 20070807

REACTIONS (8)
  - ASPARTATE AMINOTRANSFERASE INCREASED [None]
  - BLOOD CREATININE INCREASED [None]
  - BLOOD LACTATE DEHYDROGENASE INCREASED [None]
  - CARDIAC FAILURE ACUTE [None]
  - LEUKOPENIA [None]
  - NEUTROPHIL COUNT DECREASED [None]
  - PAIN IN EXTREMITY [None]
  - PROTEIN TOTAL DECREASED [None]
